FAERS Safety Report 8828254 (Version 1)
Quarter: 2012Q4

REPORT INFORMATION
  Report Type: 
  Country: ID (occurrence: ID)
  Receive Date: 20121008
  Receipt Date: 20121008
  Transmission Date: 20130627
  Serious: Yes (Death)
  Sender: FDA-Public Use
  Company Number: PHHY2012ID087507

PATIENT
  Age: 43 Year
  Sex: Male

DRUGS (2)
  1. GLIVEC [Suspect]
     Indication: CHRONIC MYELOID LEUKAEMIA
     Dosage: 400 mg, BID
     Route: 048
  2. GLIVEC [Suspect]
     Dosage: UNK UKN, UNK
     Route: 048

REACTIONS (2)
  - Death [Fatal]
  - Blood test abnormal [Unknown]
